FAERS Safety Report 4287254-X (Version None)
Quarter: 2004Q1

REPORT INFORMATION
  Report Type: 
  Country: None (occurrence: None)
  Receive Date: 20040126
  Receipt Date: 20030908
  Transmission Date: 20041129
  Serious: No
  Sender: FDA-Public Use
  Company Number: USA030639452

PATIENT
  Age: 83 Year
  Sex: Female

DRUGS (7)
  1. FORTEO [Suspect]
     Indication: OSTEOPOROSIS
     Dosage: 20 UG/DAY
     Dates: start: 20030603, end: 20030606
  2. CORTISONE [Concomitant]
  3. SYNTHROID [Concomitant]
  4. PLAVIX [Concomitant]
  5. MIACALCIN [Concomitant]
  6. FOSAMAX [Concomitant]
  7. POTASSIUM [Concomitant]

REACTIONS (2)
  - PRURITUS [None]
  - RASH [None]
